FAERS Safety Report 23338679 (Version 3)
Quarter: 2024Q1

REPORT INFORMATION
  Report Type: Spontaneous
  Country: US (occurrence: US)
  Receive Date: 20231226
  Receipt Date: 20240119
  Transmission Date: 20240410
  Serious: No
  Sender: FDA-Public Use
  Company Number: US-OPELLA-2023OHG019667

PATIENT
  Sex: Female

DRUGS (1)
  1. ICY HOT LIDOCAINE DRY [Suspect]
     Active Substance: LIDOCAINE\MENTHOL
     Route: 065

REACTIONS (2)
  - Drug ineffective [Unknown]
  - No adverse event [Unknown]
